FAERS Safety Report 10236731 (Version 1)
Quarter: 2014Q2

REPORT INFORMATION
  Report Type: Spontaneous
  Country: US (occurrence: US)
  Receive Date: 20140613
  Receipt Date: 20140613
  Transmission Date: 20141212
  Serious: Yes (Hospitalization)
  Sender: FDA-Public Use
  Company Number: US-BAYER-2014-087334

PATIENT
  Age: 33 Year
  Sex: Female
  Weight: 90.7 kg

DRUGS (4)
  1. YASMIN [Suspect]
  2. CLARITIN [Concomitant]
     Indication: MULTIPLE ALLERGIES
  3. AMBIEN [Concomitant]
     Indication: SLEEP DISORDER THERAPY
  4. MAALOX [Concomitant]

REACTIONS (2)
  - Cerebrovascular accident [None]
  - Deep vein thrombosis [None]
